FAERS Safety Report 5025224-4 (Version None)
Quarter: 2006Q2

REPORT INFORMATION
  Report Type: 
  Country: None (occurrence: None)
  Receive Date: 20060613
  Receipt Date: 20060405
  Transmission Date: 20061013
  Serious: Yes (Hospitalization)
  Sender: FDA-Public Use
  Company Number: FRWYE516029MAR06

PATIENT
  Sex: Female

DRUGS (6)
  1. ENBREL [Suspect]
     Indication: RHEUMATOID ARTHRITIS
     Dosage: UNKNOWN
     Route: 058
     Dates: start: 20040908, end: 20060210
  2. NOVATREX [Suspect]
     Indication: RHEUMATOID ARTHRITIS
     Route: 065
  3. MOPRAL [Concomitant]
  4. SPECIAFOLDINE [Concomitant]
     Dates: start: 20020515, end: 20060210
  5. NEXEN [Concomitant]
  6. CORTANCYL [Concomitant]
     Dates: start: 20020814

REACTIONS (2)
  - LEUKOCYTOSIS [None]
  - NEUTROPHILIA [None]
